FAERS Safety Report 21326835 (Version 3)
Quarter: 2023Q4

REPORT INFORMATION
  Report Type: Spontaneous
  Country: US (occurrence: US)
  Receive Date: 20220913
  Receipt Date: 20231130
  Transmission Date: 20240109
  Serious: Yes (Life-Threatening, Hospitalization, Other)
  Sender: FDA-Public Use
  Company Number: US-MLMSERVICE-20220902-3769139-1

PATIENT

DRUGS (1)
  1. AMLODIPINE [Suspect]
     Active Substance: AMLODIPINE BESYLATE
     Dosage: 4 TABLETS (40 MG) IN TOTAL
     Route: 048

REACTIONS (3)
  - Product dispensing error [Recovered/Resolved]
  - Accidental overdose [Recovered/Resolved]
  - Sinus tachycardia [Recovered/Resolved]
